FAERS Safety Report 13415592 (Version 2)
Quarter: 2017Q2

REPORT INFORMATION
  Report Type: Report from Study
  Country: CA (occurrence: CA)
  Receive Date: 20170407
  Receipt Date: 20170414
  Transmission Date: 20170830
  Serious: Yes (Other)
  Sender: FDA-Public Use
  Company Number: CA-JNJFOC-20170402642

PATIENT
  Age: 23 Year
  Sex: Male
  Weight: 105 kg

DRUGS (5)
  1. REMICADE [Suspect]
     Active Substance: INFLIXIMAB
     Indication: CROHN^S DISEASE
     Route: 042
     Dates: start: 20140505
  2. CALCIUM [Concomitant]
     Active Substance: CALCIUM
     Route: 065
  3. VITAMIN D [Concomitant]
     Active Substance: CHOLECALCIFEROL
     Route: 065
  4. FOLIC ACID. [Concomitant]
     Active Substance: FOLIC ACID
     Route: 065
  5. METHOTREXATE. [Concomitant]
     Active Substance: METHOTREXATE
     Route: 058

REACTIONS (6)
  - Colitis ulcerative [Unknown]
  - Crohn^s disease [Unknown]
  - Surgery [Unknown]
  - Incorrect dose administered [Unknown]
  - Off label use [Unknown]
  - Dysplasia [Unknown]

NARRATIVE: CASE EVENT DATE: 20140505
